FAERS Safety Report 19654875 (Version 2)
Quarter: 2021Q3

REPORT INFORMATION
  Report Type: Report from Study
  Country: CN (occurrence: CN)
  Receive Date: 20210804
  Receipt Date: 20210812
  Transmission Date: 20211014
  Serious: Yes (Hospitalization, Other)
  Sender: FDA-Public Use
  Company Number: CN-BRISTOL-MYERS SQUIBB COMPANY-BMS-2021-073839

PATIENT
  Age: 58 Year
  Sex: Male

DRUGS (2)
  1. NIVOLUMAB [Suspect]
     Active Substance: NIVOLUMAB
     Indication: GASTRIC CANCER
     Dosage: 200 MILLIGRAM, Q3WK
     Route: 041
     Dates: start: 20200923
  2. NIVOLUMAB [Suspect]
     Active Substance: NIVOLUMAB
     Dosage: 200 MILLIGRAM, Q3WK
     Route: 041
     Dates: start: 20210201

REACTIONS (4)
  - Intestinal obstruction [Unknown]
  - Gastrointestinal erosion [Unknown]
  - Off label use [Unknown]
  - Ascites [Unknown]

NARRATIVE: CASE EVENT DATE: 202105
